FAERS Safety Report 10661718 (Version 1)
Quarter: 2014Q4

REPORT INFORMATION
  Report Type: Spontaneous
  Country: US (occurrence: None)
  Receive Date: 20141217
  Receipt Date: 20141217
  Transmission Date: 20150529
  Serious: Yes (Other)
  Sender: FDA-Public Use
  Company Number: None

PATIENT
  Age: 76 Year
  Sex: Female
  Weight: 64.5 kg

DRUGS (13)
  1. DULOXETINE [Suspect]
     Active Substance: DULOXETINE
     Indication: DEPRESSION
     Dosage: 60 MG, QAM, PO
     Route: 048
  2. ASPIRIN. [Concomitant]
     Active Substance: ASPIRIN
  3. IMIPRAMINE [Suspect]
     Active Substance: IMIPRAMINE
     Indication: ANXIETY
     Dosage: 75MG, QPM, PO?
     Route: 048
  4. MELATONIN [Concomitant]
     Active Substance: MELATONIN
  5. IMIPRAMINE [Suspect]
     Active Substance: IMIPRAMINE
     Indication: INSOMNIA
     Dosage: 75MG, QPM, PO?
     Route: 048
  6. XANAX XR [Concomitant]
     Active Substance: ALPRAZOLAM
  7. ACIPHEX [Concomitant]
     Active Substance: RABEPRAZOLE SODIUM
  8. DULOXETINE [Suspect]
     Active Substance: DULOXETINE
     Indication: ANXIETY
     Dosage: 60 MG, QAM, PO
     Route: 048
  9. MIRALAX [Concomitant]
     Active Substance: POLYETHYLENE GLYCOL 3350
  10. OLANZAPINE. [Concomitant]
     Active Substance: OLANZAPINE
  11. CITRACAL [Concomitant]
     Active Substance: CALCIUM CITRATE
  12. MULTIVITAMIN [Concomitant]
     Active Substance: VITAMINS
  13. IMIPRAMINE [Suspect]
     Active Substance: IMIPRAMINE
     Indication: DEPRESSION
     Dosage: 75MG, QPM, PO?
     Route: 048

REACTIONS (2)
  - Depression [None]
  - Urinary retention [None]

NARRATIVE: CASE EVENT DATE: 20141001
